FAERS Safety Report 7648199-8 (Version None)
Quarter: 2011Q3

REPORT INFORMATION
  Report Type: 
  Country: None (occurrence: None)
  Receive Date: 20110801
  Receipt Date: 20110727
  Transmission Date: 20111222
  Serious: No
  Sender: FDA-Public Use
  Company Number: US-PFIZER INC-2011171311

PATIENT
  Sex: Male

DRUGS (1)
  1. DEPO-MEDROL [Suspect]
     Indication: ARTHRITIS
     Dosage: 80 MG, UNK
     Dates: start: 20110711

REACTIONS (9)
  - DRY MOUTH [None]
  - DIARRHOEA [None]
  - FLUSHING [None]
  - ABDOMINAL PAIN [None]
  - NAUSEA [None]
  - MALAISE [None]
  - BURNING SENSATION [None]
  - BOWEL MOVEMENT IRREGULARITY [None]
  - SPEECH DISORDER [None]
